FAERS Safety Report 8556095-7 (Version None)
Quarter: 2012Q3

REPORT INFORMATION
  Report Type: 
  Country: None (occurrence: None)
  Receive Date: 20120801
  Receipt Date: 20120723
  Transmission Date: 20120928
  Serious: Yes (Other)
  Sender: FDA-Public Use
  Company Number: US-JNJFOC-20120605006

PATIENT
  Sex: Female
  Weight: 78.93 kg

DRUGS (8)
  1. REMICADE [Suspect]
     Route: 042
     Dates: start: 20111012
  2. REMICADE [Suspect]
     Indication: PSORIATIC ARTHROPATHY
     Route: 042
     Dates: start: 20120213
  3. REMICADE [Suspect]
     Route: 042
     Dates: start: 20120621
  4. REMICADE [Suspect]
     Route: 042
     Dates: start: 20110913
  5. REMICADE [Suspect]
     Route: 042
     Dates: start: 20120607
  6. REMICADE [Suspect]
     Route: 042
     Dates: start: 20110830
  7. REMICADE [Suspect]
     Route: 042
     Dates: start: 20120409
  8. REMICADE [Suspect]
     Route: 042
     Dates: start: 20111220

REACTIONS (3)
  - INFUSION RELATED REACTION [None]
  - HEADACHE [None]
  - MIGRAINE WITH AURA [None]
